FAERS Safety Report 16742353 (Version 1)
Quarter: 2019Q3

REPORT INFORMATION
  Report Type: Spontaneous
  Country: US (occurrence: US)
  Receive Date: 20190826
  Receipt Date: 20190826
  Transmission Date: 20191005
  Serious: No
  Sender: FDA-Public Use
  Company Number: US-JNJFOC-20190821452

PATIENT
  Age: 65 Year
  Sex: Female
  Weight: 113.5 kg

DRUGS (1)
  1. XARELTO [Suspect]
     Active Substance: RIVAROXABAN
     Indication: THROMBOSIS
     Route: 048

REACTIONS (7)
  - Rash [Not Recovered/Not Resolved]
  - Asthenia [Not Recovered/Not Resolved]
  - Diarrhoea [Unknown]
  - Lymphadenopathy [Not Recovered/Not Resolved]
  - Dyspepsia [Unknown]
  - Muscle spasms [Unknown]
  - Hypopnoea [Recovering/Resolving]

NARRATIVE: CASE EVENT DATE: 201908
